FAERS Safety Report 25204069 (Version 1)
Quarter: 2025Q2

REPORT INFORMATION
  Report Type: Spontaneous
  Country: US (occurrence: US)
  Receive Date: 20250416
  Receipt Date: 20250416
  Transmission Date: 20250717
  Serious: No
  Sender: SANOFI AVENTIS
  Company Number: US-SA-2025SA108375

PATIENT

DRUGS (1)
  1. TZIELD [Suspect]
     Active Substance: TEPLIZUMAB-MZWV
     Indication: Product used for unknown indication

REACTIONS (1)
  - Liver disorder [Unknown]
